FAERS Safety Report 8981997 (Version 2)
Quarter: 2013Q1

REPORT INFORMATION
  Report Type: Spontaneous
  Country: EC (occurrence: EC)
  Receive Date: 20121223
  Receipt Date: 20130110
  Transmission Date: 20140127
  Serious: Yes (Hospitalization, Other)
  Sender: FDA-Public Use
  Company Number: PHHY2012EC117565

PATIENT
  Age: 69 None
  Sex: Male

DRUGS (2)
  1. EXFORGE [Suspect]
     Indication: HYPERTENSION
     Dosage: 1 DF (160 MG VALS AND 5 MG AMLO), QD
     Route: 048
     Dates: start: 2009
  2. EXFORGE [Suspect]
     Dosage: 1 DF (160 MG VALS AND 5 MG AMLO), QD
     Route: 048

REACTIONS (5)
  - Peritonitis [Recovering/Resolving]
  - Appendicitis [Recovering/Resolving]
  - Arthropathy [Not Recovered/Not Resolved]
  - Wound [Unknown]
  - Pain [Unknown]
